FAERS Safety Report 8999567 (Version 1)
Quarter: 2013Q1

REPORT INFORMATION
  Report Type: Spontaneous
  Country: US (occurrence: US)
  Receive Date: 20130102
  Receipt Date: 20130102
  Transmission Date: 20140127
  Serious: No
  Sender: FDA-Public Use
  Company Number: US-AMGEN-USASP2012077489

PATIENT
  Age: 47 Year
  Sex: Female
  Weight: 59.41 kg

DRUGS (3)
  1. ENBREL [Suspect]
     Indication: RHEUMATOID ARTHRITIS
     Dosage: 50 MG, QWK
     Route: 058
     Dates: start: 20120604, end: 20121120
  2. PREDNISONE [Concomitant]
     Dosage: 2 MG, QD
  3. MTX                                /00113801/ [Concomitant]
     Dosage: 20 MG, QWK

REACTIONS (3)
  - Pain [Not Recovered/Not Resolved]
  - Bronchitis [Not Recovered/Not Resolved]
  - Nasopharyngitis [Not Recovered/Not Resolved]
